FAERS Safety Report 7128293-0 (Version None)
Quarter: 2010Q4

REPORT INFORMATION
  Report Type: 
  Country: None (occurrence: None)
  Receive Date: 20101130
  Receipt Date: 20101117
  Transmission Date: 20110411
  Serious: Yes (Hospitalization, Other)
  Sender: FDA-Public Use
  Company Number: PHHY2010FR78722

PATIENT
  Sex: Male

DRUGS (13)
  1. VALSARTAN  AND HYDROCHLOROTHIAZIDE [Suspect]
     Dosage: 80/12.5 MG, ONCE A DAY
     Dates: start: 20090101
  2. SPIRONOLACTONE [Interacting]
     Dosage: 50 MG, ONCE A DAY
     Route: 048
     Dates: start: 20090101, end: 20090818
  3. LIORESAL [Concomitant]
     Route: 048
  4. LANTUS [Concomitant]
  5. NOVORAPID [Concomitant]
     Route: 048
  6. TAHOR [Concomitant]
     Dosage: 10
  7. PERMIXON [Concomitant]
     Dosage: 160 MG, UNK
     Route: 048
  8. LYRICA [Concomitant]
     Dosage: 150 MG, UNK
  9. LYRICA [Concomitant]
     Dosage: 50 MG, UNK
  10. PLAVIX [Concomitant]
     Dosage: 75 MG, UNK
     Route: 048
  11. DOXAZOSIN MESYLATE [Concomitant]
     Dosage: LP 8 MG, UNK
     Route: 048
  12. ADVIL [Concomitant]
  13. ACETAMINOPHEN [Concomitant]

REACTIONS (12)
  - ARTHRALGIA [None]
  - BLOOD CREATININE INCREASED [None]
  - BLOOD UREA INCREASED [None]
  - C-REACTIVE PROTEIN INCREASED [None]
  - DEHYDRATION [None]
  - DIARRHOEA [None]
  - DRUG INTERACTION [None]
  - FALL [None]
  - GASTROENTERITIS [None]
  - GENERAL PHYSICAL HEALTH DETERIORATION [None]
  - HYPERKALAEMIA [None]
  - MUCOUS MEMBRANE DISORDER [None]
